FAERS Safety Report 8501593-5 (Version None)
Quarter: 2012Q3

REPORT INFORMATION
  Report Type: 
  Country: None (occurrence: None)
  Receive Date: 20120710
  Receipt Date: 20120705
  Transmission Date: 20120928
  Serious: Yes (Death, Life-Threatening, Hospitalization)
  Sender: FDA-Public Use
  Company Number: DE-ROCHE-1084894

PATIENT
  Sex: Male

DRUGS (2)
  1. XELODA [Suspect]
     Indication: RECTAL CANCER
     Dosage: LAST DOSE PRIOR TO SAE: 23/MAR/2011
     Route: 048
     Dates: start: 20110214
  2. OXALIPLATIN [Suspect]
     Indication: RECTAL CANCER
     Dosage: LAST DOSE PRIOR TO SAE: 14/MAR/2011
     Route: 042
     Dates: start: 20110214

REACTIONS (4)
  - MULTI-ORGAN FAILURE [None]
  - SPLENIC LESION [None]
  - ACUTE ABDOMEN [None]
  - HAEMOGLOBIN DECREASED [None]
